FAERS Safety Report 19141708 (Version 2)
Quarter: 2021Q2

REPORT INFORMATION
  Report Type: Spontaneous
  Country: JP (occurrence: JP)
  Receive Date: 20210415
  Receipt Date: 20210622
  Transmission Date: 20210717
  Serious: Yes (Other)
  Sender: FDA-Public Use
  Company Number: JP-TEVA-2021-JP-1900208

PATIENT
  Age: 5 Decade
  Sex: Female

DRUGS (18)
  1. OXALIPLATIN. [Suspect]
     Active Substance: OXALIPLATIN
     Indication: RECTAL CANCER STAGE IV
     Dosage: ON DAY 1, EVERY 3 WEEKS; CAPEOX REGIMEN
     Route: 065
  2. OXALIPLATIN. [Suspect]
     Active Substance: OXALIPLATIN
     Dosage: ON DAY 1; EVERY 2 WEEKS; MFOLFOX6 REGIMEN
     Route: 065
  3. FLUOROURACIL. [Suspect]
     Active Substance: FLUOROURACIL
     Indication: RECTAL CANCER STAGE IV
     Dosage: ON DAYS 1, EVERY 2 WEEKS; MFOLFOX6 REGIMEN
     Route: 065
  4. FLUOROURACIL. [Suspect]
     Active Substance: FLUOROURACIL
     Dosage: FOR 46HOURS FROM DAY 1, EVERY 2 WEEKS; MFOLFOX6 REGIMEN
     Route: 065
  5. FLUOROURACIL. [Suspect]
     Active Substance: FLUOROURACIL
     Dosage: ON DAYS 1, EVERY 2 WEEKS; FOLFIRI REGIMEN
     Route: 065
  6. EDOXABAN [Suspect]
     Active Substance: EDOXABAN TOSYLATE
     Indication: PRODUCT USED FOR UNKNOWN INDICATION
     Dosage: 30 MILLIGRAM DAILY; STARTED 7 MONTHS PRIOR TO THE INITIATION OF FOLFIRI CHEMOTHERAPY
     Route: 065
  7. MINOCYCLINE [Concomitant]
     Active Substance: MINOCYCLINE HYDROCHLORIDE
     Indication: PRODUCT USED FOR UNKNOWN INDICATION
     Dosage: 100 MILLIGRAM DAILY; DURING MFOLFOX6 THERAPY
     Route: 065
  8. MIRABEGRON [Concomitant]
     Active Substance: MIRABEGRON
     Indication: PRODUCT USED FOR UNKNOWN INDICATION
     Dosage: 50 MILLIGRAM DAILY;
     Route: 065
  9. LEVOFOLINATE CALCIUM [Suspect]
     Active Substance: LEVOLEUCOVORIN CALCIUM
     Dosage: ON DAY 1, EVERY 2 WEEKS; FOLFIRI REGIMEN
     Route: 065
  10. IRINOTECAN [Suspect]
     Active Substance: IRINOTECAN
     Indication: RECTAL CANCER STAGE IV
     Dosage: ON DAY 1, EVERY 2 WEEKS; FOLFIRI REGIMEN
     Route: 065
  11. FLUOROURACIL. [Suspect]
     Active Substance: FLUOROURACIL
     Dosage: FOR 46HOURS FROM DAY 1, EVERY 2 WEEKS; FOLFIRI REGIMEN
     Route: 065
  12. PANITUMUMAB [Suspect]
     Active Substance: PANITUMUMAB
     Indication: RECTAL CANCER STAGE IV
     Dosage: EVERY 2 WEEKS
     Route: 065
  13. URAPIDIL [Concomitant]
     Active Substance: URAPIDIL
     Indication: PRODUCT USED FOR UNKNOWN INDICATION
     Dosage: 30 MILLIGRAM DAILY;
     Route: 065
  14. TRAMADOL. [Concomitant]
     Active Substance: TRAMADOL
     Indication: PRODUCT USED FOR UNKNOWN INDICATION
     Dosage: SUSTAINED?RELEASE; 200?300MG
     Route: 065
  15. LEVOFOLINATE CALCIUM [Suspect]
     Active Substance: LEVOLEUCOVORIN CALCIUM
     Indication: RECTAL CANCER STAGE IV
     Dosage: ON DAYS 1, EVERY 2 WEEKS; MFOLFOX6 REGIMEN
     Route: 065
  16. CAPECITABINE. [Suspect]
     Active Substance: CAPECITABINE
     Indication: RECTAL CANCER STAGE IV
     Dosage: 2000 MG/M2 DAILY; ON DAYS 1?14, EVERY 3 WEEKS; CAPEOX REGIMEN
     Route: 065
  17. RAMUCIRUMAB [Suspect]
     Active Substance: RAMUCIRUMAB
     Indication: RECTAL CANCER STAGE IV
     Dosage: EVERY 2 WEEKS; FOLFIRI REGIMEN
     Route: 065
  18. VONOPRAZAN [Concomitant]
     Active Substance: VONOPRAZAN
     Indication: PRODUCT USED FOR UNKNOWN INDICATION
     Dosage: 10 MILLIGRAM DAILY;
     Route: 065

REACTIONS (7)
  - Hypertension [Unknown]
  - Fatigue [Unknown]
  - Hypertriglyceridaemia [Recovering/Resolving]
  - Decreased appetite [Unknown]
  - Skin toxicity [Unknown]
  - Nausea [Unknown]
  - Hypersensitivity [Unknown]
